FAERS Safety Report 4907765-0 (Version None)
Quarter: 2006Q1

REPORT INFORMATION
  Report Type: 
  Country: None (occurrence: None)
  Receive Date: 20060208
  Receipt Date: 20060208
  Transmission Date: 20060701
  Serious: Yes (Hospitalization)
  Sender: FDA-Public Use
  Company Number: None

PATIENT
  Age: 72 Year
  Sex: Male

DRUGS (6)
  1. FUROSEMIDE [Suspect]
     Indication: FLUID OVERLOAD
     Dosage: 120MG QAM   80MG QPM
     Dates: start: 19960601
  2. FUROSEMIDE [Suspect]
     Indication: HYPERTENSION
     Dosage: 120MG QAM   80MG QPM
     Dates: start: 19960601
  3. AUGMENTIN '125' [Concomitant]
  4. AMIODARONE HCL [Concomitant]
  5. GABAPENTIN [Concomitant]
  6. WARFARIN [Concomitant]

REACTIONS (1)
  - RENAL FAILURE ACUTE [None]
